FAERS Safety Report 5364969-3 (Version None)
Quarter: 2007Q2

REPORT INFORMATION
  Report Type: 
  Country: None (occurrence: None)
  Receive Date: 20070621
  Receipt Date: 20070614
  Transmission Date: 20071010
  Serious: Yes (Hospitalization, Other)
  Sender: FDA-Public Use
  Company Number: GR-JNJFOC-20070603356

PATIENT
  Age: 70 Year
  Sex: Male
  Weight: 53 kg

DRUGS (14)
  1. CAELYX [Suspect]
     Indication: HODGKIN'S DISEASE NODULAR SCLEROSIS STAGE UNSPECIFIED
     Route: 042
     Dates: start: 20070327, end: 20070515
  2. CAELYX [Suspect]
     Indication: HODGKIN'S DISEASE
     Route: 042
     Dates: start: 20070327, end: 20070515
  3. BLEOCIN [Concomitant]
     Route: 042
  4. BLEOCIN [Concomitant]
     Route: 042
  5. BLEOCIN [Concomitant]
     Route: 042
  6. BLEOCIN [Concomitant]
     Route: 042
  7. VELBE [Concomitant]
     Route: 042
  8. VELBE [Concomitant]
     Route: 042
  9. VELBE [Concomitant]
     Route: 042
  10. VELBE [Concomitant]
     Route: 042
  11. DETICENE [Concomitant]
     Route: 042
  12. DETICENE [Concomitant]
     Route: 042
  13. DETICENE [Concomitant]
     Route: 042
  14. DETICENE [Concomitant]
     Route: 042

REACTIONS (3)
  - ANOREXIA [None]
  - MALAISE [None]
  - PALMAR-PLANTAR ERYTHRODYSAESTHESIA SYNDROME [None]
